FAERS Safety Report 17761153 (Version 1)
Quarter: 2020Q2

REPORT INFORMATION
  Report Type: Spontaneous
  Country: BR (occurrence: BR)
  Receive Date: 20200508
  Receipt Date: 20200508
  Transmission Date: 20200714
  Serious: Yes (Life-Threatening, Other)
  Sender: FDA-Public Use
  Company Number: PHHY2019BR149444

PATIENT
  Sex: Female

DRUGS (6)
  1. OLCADIL [Suspect]
     Active Substance: CLOXAZOLAM
     Indication: ANXIETY
     Dosage: CONCENTRATION: 1 MG
     Route: 065
  2. OLCADIL [Suspect]
     Active Substance: CLOXAZOLAM
     Dosage: CONCENTRATION: 2 MG
     Route: 065
  3. CLOXAN [Concomitant]
     Indication: ANXIETY
     Dosage: UNK
     Route: 065
     Dates: start: 2019
  4. OLCADIL [Suspect]
     Active Substance: CLOXAZOLAM
     Dosage: CONCENTRATION: 2 MG
     Route: 065
  5. ALPRAZOLAM. [Suspect]
     Active Substance: ALPRAZOLAM
     Indication: SLEEP DISORDER
     Dosage: UNK
     Route: 065
  6. OLCADIL [Suspect]
     Active Substance: CLOXAZOLAM
     Dosage: CONCENTRATION: 4 MG
     Route: 065

REACTIONS (29)
  - Head discomfort [Unknown]
  - Nervousness [Unknown]
  - Wrong technique in product usage process [Unknown]
  - Feeling abnormal [Unknown]
  - Drug dependence [Unknown]
  - Drug withdrawal syndrome [Unknown]
  - Muscle rigidity [Unknown]
  - Skin discolouration [Unknown]
  - Ill-defined disorder [Unknown]
  - Insomnia [Unknown]
  - Tremor [Unknown]
  - Stitch abscess [Unknown]
  - Tachycardia [Unknown]
  - Sensory loss [Unknown]
  - Visual impairment [Unknown]
  - Inappropriate schedule of product administration [Unknown]
  - Hypertension [Unknown]
  - Memory impairment [Unknown]
  - Depressed mood [Unknown]
  - Anxiety [Unknown]
  - Malaise [Unknown]
  - Expired product administered [Unknown]
  - Keloid scar [Unknown]
  - Syncope [Unknown]
  - Migraine [Not Recovered/Not Resolved]
  - Pain [Unknown]
  - Panic disorder [Unknown]
  - Fear [Unknown]
  - Retching [Not Recovered/Not Resolved]

NARRATIVE: CASE EVENT DATE: 2019
